FAERS Safety Report 9690024 (Version 4)
Quarter: 2013Q4

REPORT INFORMATION
  Report Type: Spontaneous
  Country: GB (occurrence: GB)
  Receive Date: 20131115
  Receipt Date: 20131225
  Transmission Date: 20140711
  Serious: Yes (Other)
  Sender: FDA-Public Use
  Company Number: GB-ACCORD-020276

PATIENT
  Sex: 0

DRUGS (1)
  1. AMLODIPINE [Suspect]
     Indication: BLOOD PRESSURE SYSTOLIC INCREASED
     Dosage: BN DETAILS PREVIOUS-PM0329 CURRENT PACK PP00832.STORAGE CONDITION GOOD,
     Route: 048

REACTIONS (8)
  - Blood pressure increased [Recovered/Resolved]
  - Product quality issue [Unknown]
  - Body temperature increased [Recovered/Resolved]
  - Dizziness [Recovered/Resolved]
  - Vision blurred [Recovered/Resolved]
  - Headache [Recovered/Resolved]
  - Urinary hesitation [Recovered/Resolved]
  - Product taste abnormal [Unknown]
